FAERS Safety Report 4586817-1 (Version None)
Quarter: 2005Q1

REPORT INFORMATION
  Report Type: 
  Country: None (occurrence: None)
  Receive Date: 20050217
  Receipt Date: 20050217
  Transmission Date: 20050727
  Serious: Yes (Death)
  Sender: FDA-Public Use
  Company Number: None

PATIENT
  Age: 41 Year
  Sex: Female
  Weight: 54.4316 kg

DRUGS (1)
  1. SEREVENT [Suspect]
     Indication: ASTHMA
     Dosage: 1 OR 2   DAY   RESPIRATOR
     Dates: start: 20010201, end: 20030809

REACTIONS (2)
  - ASTHMA [None]
  - RESPIRATORY ARREST [None]
